FAERS Safety Report 17313323 (Version 1)
Quarter: 2020Q1

REPORT INFORMATION
  Report Type: Spontaneous
  Country: JP (occurrence: JP)
  Receive Date: 20200124
  Receipt Date: 20200124
  Transmission Date: 20200409
  Serious: Yes (Other)
  Sender: FDA-Public Use
  Company Number: JP-ROCHE-2469433

PATIENT
  Age: 63 Year
  Sex: Female

DRUGS (9)
  1. LUCENTIS [Suspect]
     Active Substance: RANIBIZUMAB
     Dosage: 0.5 MG
     Route: 031
     Dates: start: 20150302
  2. EYLEA [Suspect]
     Active Substance: AFLIBERCEPT
     Dosage: 2 MG
     Route: 031
     Dates: start: 20160609
  3. EYLEA [Suspect]
     Active Substance: AFLIBERCEPT
     Dosage: 2 MG
     Route: 031
     Dates: start: 20161020
  4. EYLEA [Suspect]
     Active Substance: AFLIBERCEPT
     Dosage: 2 MG
     Route: 031
     Dates: start: 20170706
  5. EYLEA [Suspect]
     Active Substance: AFLIBERCEPT
     Indication: DIABETIC RETINAL OEDEMA
     Dosage: 2 MG
     Route: 031
     Dates: start: 20150401
  6. LUCENTIS [Suspect]
     Active Substance: RANIBIZUMAB
     Indication: DIABETIC RETINAL OEDEMA
     Dosage: 0.5 MG
     Route: 031
     Dates: start: 20150105
  7. EYLEA [Suspect]
     Active Substance: AFLIBERCEPT
     Dosage: 2 MG
     Route: 031
     Dates: start: 20160201
  8. EYLEA [Suspect]
     Active Substance: AFLIBERCEPT
     Dosage: 2 MG
     Route: 031
     Dates: start: 20160512
  9. EYLEA [Suspect]
     Active Substance: AFLIBERCEPT
     Dosage: 2 MG
     Route: 031
     Dates: start: 20160804

REACTIONS (1)
  - Retinal artery occlusion [Not Recovered/Not Resolved]
